FAERS Safety Report 12614695 (Version 1)
Quarter: 2016Q3

REPORT INFORMATION
  Report Type: Spontaneous
  Country: JP (occurrence: JP)
  Receive Date: 20160802
  Receipt Date: 20160802
  Transmission Date: 20161109
  Serious: Yes (Other)
  Sender: FDA-Public Use
  Company Number: JP-TEVA-681478ISR

PATIENT
  Age: 45 Year
  Sex: Male

DRUGS (4)
  1. MYCOPHENOLATE MOFETIL. [Suspect]
     Active Substance: MYCOPHENOLATE MOFETIL
  2. TACROLIMUS. [Suspect]
     Active Substance: TACROLIMUS
  3. TACROLIMUS. [Suspect]
     Active Substance: TACROLIMUS
  4. EVEROLIMUS [Suspect]
     Active Substance: EVEROLIMUS

REACTIONS (2)
  - Glomerulonephritis proliferative [Recovering/Resolving]
  - Post transplant lymphoproliferative disorder [Recovering/Resolving]
